FAERS Safety Report 6936883-0 (Version None)
Quarter: 2010Q3

REPORT INFORMATION
  Report Type: 
  Country: None (occurrence: None)
  Receive Date: 20100823
  Receipt Date: 20100812
  Transmission Date: 20110219
  Serious: Yes (Other)
  Sender: FDA-Public Use
  Company Number: CA-JNJFOC-20100804826

PATIENT
  Sex: Female
  Weight: 74 kg

DRUGS (3)
  1. REMICADE [Suspect]
     Indication: CROHN'S DISEASE
     Route: 042
  2. REMICADE [Suspect]
     Route: 042
  3. TYLENOL W/ CODEINE NO. 3 [Concomitant]
     Route: 065

REACTIONS (5)
  - EYE IRRITATION [None]
  - INFUSION RELATED REACTION [None]
  - JOINT DISLOCATION [None]
  - OCULAR HYPERAEMIA [None]
  - PAIN [None]
